FAERS Safety Report 9990858 (Version 1)
Quarter: 2014Q1

REPORT INFORMATION
  Report Type: Report from Study
  Country: US (occurrence: US)
  Receive Date: 20140310
  Receipt Date: 20140310
  Transmission Date: 20141002
  Serious: No
  Sender: FDA-Public Use
  Company Number: US-ABBVIE-13P-163-1134984-00

PATIENT
  Sex: Male
  Weight: 63.56 kg

DRUGS (1)
  1. HUMIRA [Suspect]
     Indication: ANKYLOSING SPONDYLITIS
     Dates: start: 201302

REACTIONS (4)
  - Medication error [Not Recovered/Not Resolved]
  - Pain in extremity [Not Recovered/Not Resolved]
  - Local swelling [Not Recovered/Not Resolved]
  - Gait disturbance [Not Recovered/Not Resolved]
